FAERS Safety Report 12437208 (Version 1)
Quarter: 2016Q2

REPORT INFORMATION
  Report Type: Spontaneous
  Country: US (occurrence: None)
  Receive Date: 20160603
  Receipt Date: 20160603
  Transmission Date: 20160815
  Serious: Yes (Hospitalization)
  Sender: FDA-Public Use
  Company Number: None

PATIENT
  Age: 20 Year
  Sex: Female

DRUGS (5)
  1. TYLENOL [Concomitant]
     Active Substance: ACETAMINOPHEN
  2. ACETAMINOPHEN ADVIL [Concomitant]
  3. ONE A DAY WOMEN VITAMINS [Concomitant]
  4. BIOTIN [Concomitant]
     Active Substance: BIOTIN
  5. NEXPLANON [Suspect]
     Active Substance: ETONOGESTREL
     Dates: start: 20140922

REACTIONS (7)
  - Haemorrhage [None]
  - Drug ineffective [None]
  - Abdominal pain [None]
  - Chest pain [None]
  - Migraine [None]
  - Breast pain [None]
  - Headache [None]

NARRATIVE: CASE EVENT DATE: 20151201
